FAERS Safety Report 16923431 (Version 2)
Quarter: 2019Q4

REPORT INFORMATION
  Report Type: Spontaneous
  Country: MX (occurrence: MX)
  Receive Date: 20191016
  Receipt Date: 20191018
  Transmission Date: 20200122
  Serious: Yes (Life-Threatening, Hospitalization, Other)
  Sender: FDA-Public Use
  Company Number: MX-PFIZER INC-2019397105

PATIENT
  Age: 1 Year
  Sex: Male

DRUGS (1)
  1. BENEFIX [Suspect]
     Active Substance: COAGULATION FACTOR IX RECOMBINANT HUMAN\ISOPROPYL ALCOHOL
     Indication: FACTOR IX DEFICIENCY
     Dosage: 500 IU, 2X/WEEK
     Route: 042
     Dates: start: 201811

REACTIONS (4)
  - Factor IX inhibition [Unknown]
  - Vomiting [Unknown]
  - Lip oedema [Unknown]
  - Rash [Unknown]

NARRATIVE: CASE EVENT DATE: 201905
